FAERS Safety Report 8066053-7 (Version None)
Quarter: 2012Q1

REPORT INFORMATION
  Report Type: 
  Country: None (occurrence: None)
  Receive Date: 20120124
  Receipt Date: 20111111
  Transmission Date: 20120608
  Serious: Yes (Hospitalization)
  Sender: FDA-Public Use
  Company Number: DE-ROCHE-1003311

PATIENT
  Sex: Female

DRUGS (2)
  1. BLINDED RANIBIZUMAB [Suspect]
     Indication: MYOPIA
     Route: 050
     Dates: start: 20110316, end: 20110316
  2. BLINDED RANIBIZUMAB [Suspect]
     Dates: start: 20111025

REACTIONS (2)
  - MYOCARDITIS [None]
  - CONCOMITANT DISEASE PROGRESSION [None]
